FAERS Safety Report 7305620-2 (Version None)
Quarter: 2011Q1

REPORT INFORMATION
  Report Type: 
  Country: None (occurrence: None)
  Receive Date: 20110222
  Receipt Date: 20110214
  Transmission Date: 20110831
  Serious: Yes (Other)
  Sender: FDA-Public Use
  Company Number: BR-ROCHE-726353

PATIENT
  Sex: Female
  Weight: 76 kg

DRUGS (17)
  1. PREDNISONE [Concomitant]
  2. NATRILIX [Concomitant]
  3. OMEPRAZOLE [Concomitant]
  4. TOCILIZUMAB [Suspect]
     Route: 042
     Dates: start: 20100407, end: 20100407
  5. AMLODIPINE BESYLATE [Concomitant]
  6. METFORMIN HYDROCHLORIDE [Concomitant]
  7. CALCIUM [Concomitant]
  8. TOCILIZUMAB [Suspect]
     Route: 042
     Dates: start: 20100507, end: 20100507
  9. TOCILIZUMAB [Suspect]
     Route: 042
     Dates: start: 20100816, end: 20100816
  10. SIMVASTATIN [Concomitant]
  11. TOCILIZUMAB [Suspect]
     Route: 042
     Dates: start: 20100707, end: 20100707
  12. TOCILIZUMAB [Suspect]
     Route: 042
  13. ALENDRONIC ACID [Concomitant]
  14. FLUOXETINE [Concomitant]
  15. TOCILIZUMAB [Suspect]
     Indication: RHEUMATOID ARTHRITIS
     Route: 042
     Dates: start: 20100311, end: 20100311
  16. TOCILIZUMAB [Suspect]
     Route: 042
     Dates: start: 20100607, end: 20100607
  17. LOSACOR [Concomitant]

REACTIONS (6)
  - DIABETES MELLITUS [None]
  - ARTHRALGIA [None]
  - NASOPHARYNGITIS [None]
  - DYSLIPIDAEMIA [None]
  - SINUSITIS [None]
  - WEIGHT INCREASED [None]
